FAERS Safety Report 7682530-2 (Version None)
Quarter: 2011Q3

REPORT INFORMATION
  Report Type: 
  Country: None (occurrence: None)
  Receive Date: 20110815
  Receipt Date: 20110808
  Transmission Date: 20111222
  Serious: Yes (Other)
  Sender: FDA-Public Use
  Company Number: US-GENZYME-FLUD-1001337

PATIENT
  Age: 49 Year
  Sex: Female

DRUGS (4)
  1. CYCLOPHOSPHAMIDE [Suspect]
     Indication: LANGERHANS' CELL HISTIOCYTOSIS
     Dosage: UNK
     Route: 065
  2. CLADRIBINE [Suspect]
     Indication: LANGERHANS' CELL HISTIOCYTOSIS
     Dosage: UNK
     Route: 065
  3. VINBLASTINE SULFATE [Suspect]
     Indication: LANGERHANS' CELL HISTIOCYTOSIS
     Dosage: UNK
     Route: 065
  4. FLUDARA [Suspect]
     Indication: LANGERHANS' CELL HISTIOCYTOSIS
     Dosage: UNK
     Route: 065

REACTIONS (5)
  - PAIN [None]
  - NEUROPATHY PERIPHERAL [None]
  - SKIN SENSITISATION [None]
  - SKIN DISORDER [None]
  - NEUTROPENIA [None]
